FAERS Safety Report 12392452 (Version 1)
Quarter: 2016Q2

REPORT INFORMATION
  Report Type: Spontaneous
  Country: GB (occurrence: GB)
  Receive Date: 20160523
  Receipt Date: 20160523
  Transmission Date: 20160815
  Serious: Yes (Other)
  Sender: FDA-Public Use
  Company Number: GB-ACCORD-040657

PATIENT
  Age: 29 Year
  Sex: Female
  Weight: 95 kg

DRUGS (3)
  1. DIAZEPAM. [Concomitant]
     Active Substance: DIAZEPAM
  2. SERTRALINE [Suspect]
     Active Substance: SERTRALINE HYDROCHLORIDE
     Indication: PRODUCT USED FOR UNKNOWN INDICATION
     Route: 048
     Dates: start: 20160404, end: 20160424
  3. FLUOXETINE [Suspect]
     Active Substance: FLUOXETINE HYDROCHLORIDE
     Indication: MOOD SWINGS
     Dosage: PREVIOUSLY RECEIVED 20 MG FORM 08-FEB-2016 TO 08-MAR-2016 THEN INCREASED TO 40 MG
     Route: 048
     Dates: start: 20160308, end: 20160326

REACTIONS (3)
  - Drug ineffective [Unknown]
  - Liver function test abnormal [Recovering/Resolving]
  - Abdominal pain upper [Unknown]

NARRATIVE: CASE EVENT DATE: 20160420
